FAERS Safety Report 25868087 (Version 3)
Quarter: 2025Q4

REPORT INFORMATION
  Report Type: Spontaneous
  Country: US (occurrence: US)
  Receive Date: 20251001
  Receipt Date: 20251024
  Transmission Date: 20260118
  Serious: Yes (Death)
  Sender: ROCHE
  Company Number: US-ROCHE-10000397209

PATIENT
  Age: 61 Year
  Sex: Female

DRUGS (1)
  1. OCREVUS [Suspect]
     Active Substance: OCRELIZUMAB
     Indication: Multiple sclerosis
     Dosage: LAST INFUSION ON APR-2025
     Route: 042
     Dates: end: 20250423

REACTIONS (7)
  - General physical health deterioration [Unknown]
  - Lymphadenopathy [Unknown]
  - Thrombosis [Unknown]
  - Pancreatic carcinoma stage IV [Fatal]
  - Swelling [Unknown]
  - Peripheral swelling [Unknown]
  - Pleural effusion [Unknown]

NARRATIVE: CASE EVENT DATE: 20250801
